FAERS Safety Report 20541458 (Version 1)
Quarter: 2022Q1

REPORT INFORMATION
  Report Type: Spontaneous
  Country: US (occurrence: None)
  Receive Date: 20220302
  Receipt Date: 20220302
  Transmission Date: 20220423
  Serious: Yes (Death)
  Sender: FDA-Public Use
  Company Number: None

PATIENT
  Age: 45 Year
  Sex: Male
  Weight: 122.4 kg

DRUGS (12)
  1. EVEROLIMUS [Suspect]
     Active Substance: EVEROLIMUS
     Indication: Breast cancer male
     Dosage: FREQUENCY : DAILY;?
     Route: 048
     Dates: start: 20210422, end: 20220226
  2. BUPROPION [Concomitant]
     Active Substance: BUPROPION
  3. ELIQUIS [Concomitant]
     Active Substance: APIXABAN
  4. TAMOXIFEN [Concomitant]
     Active Substance: TAMOXIFEN
  5. LISINOPRIL [Concomitant]
     Active Substance: LISINOPRIL
  6. FUROSEMIDE [Concomitant]
     Active Substance: FUROSEMIDE
  7. POTASSIUM CHLORIDE [Concomitant]
     Active Substance: POTASSIUM CHLORIDE
  8. OXYCODONE [Concomitant]
     Active Substance: OXYCODONE
  9. MORPHINE SULFATE [Concomitant]
     Active Substance: MORPHINE SULFATE
  10. VITAMIN D3 [Concomitant]
     Active Substance: CHOLECALCIFEROL
  11. vitamin E complex [Concomitant]
  12. VITAMINS [Concomitant]
     Active Substance: VITAMINS

REACTIONS (1)
  - Death [None]

NARRATIVE: CASE EVENT DATE: 20220226
